FAERS Safety Report 6336190-3 (Version None)
Quarter: 2009Q3

REPORT INFORMATION
  Report Type: 
  Country: None (occurrence: None)
  Receive Date: 20090831
  Receipt Date: 20090831
  Transmission Date: 20100115
  Serious: Yes (Other)
  Sender: FDA-Public Use
  Company Number: None

PATIENT
  Sex: Female
  Weight: 63.5036 kg

DRUGS (6)
  1. ZYPREXA [Suspect]
     Indication: BIPOLAR DISORDER
     Dosage: 10 MGM H.S. PO
     Route: 048
     Dates: start: 20090804, end: 20090814
  2. ZYPREXA [Suspect]
     Indication: BLOOD GLUCOSE INCREASED
     Dosage: 10 MGM H.S. PO
     Route: 048
     Dates: start: 20090804, end: 20090814
  3. ARICEPT [Concomitant]
  4. CALCIUM [Concomitant]
  5. GABAPENTIN [Concomitant]
  6. FOSAMAX [Concomitant]

REACTIONS (8)
  - AGITATION [None]
  - BACK PAIN [None]
  - DYSPHAGIA [None]
  - INCREASED UPPER AIRWAY SECRETION [None]
  - NIGHT SWEATS [None]
  - PSYCHOMOTOR HYPERACTIVITY [None]
  - SALIVARY HYPERSECRETION [None]
  - URINE OUTPUT INCREASED [None]
